FAERS Safety Report 6250171-X (Version None)
Quarter: 2009Q2

REPORT INFORMATION
  Report Type: 
  Country: None (occurrence: None)
  Receive Date: 20090626
  Receipt Date: 20090615
  Transmission Date: 20091009
  Serious: Yes (Hospitalization, Other)
  Sender: FDA-Public Use
  Company Number: 230954K08USA

PATIENT
  Age: 32 Year
  Sex: Female
  Weight: 54 kg

DRUGS (9)
  1. REBIF [Suspect]
     Indication: MULTIPLE SCLEROSIS
     Dosage: 44 MCG, 3 IN 1 WEEKS, SUBCUTANEOUS
     Route: 058
     Dates: start: 20070605, end: 20090331
  2. REBIF [Suspect]
     Indication: MULTIPLE SCLEROSIS
     Dosage: 44 MCG, 3 IN 1 WEEKS, SUBCUTANEOUS
     Route: 058
     Dates: start: 20050713
  3. LYRICA [Concomitant]
  4. PROVIGIL [Concomitant]
  5. AMANTADINE HCL [Concomitant]
  6. KLONOPIN [Concomitant]
  7. METHOTREXATE [Concomitant]
  8. IMURAN [Concomitant]
  9. ZANAFLEX [Concomitant]

REACTIONS (12)
  - COLECTOMY [None]
  - COLOSTOMY [None]
  - CONVULSION [None]
  - DEHYDRATION [None]
  - DRUG WITHDRAWAL SYNDROME [None]
  - ELECTROLYTE IMBALANCE [None]
  - GASTROINTESTINAL MOTILITY DISORDER [None]
  - MUSCLE SPASTICITY [None]
  - NAUSEA [None]
  - PROCTALGIA [None]
  - SLEEP DISORDER [None]
  - VOMITING [None]
